FAERS Safety Report 21376439 (Version 1)
Quarter: 2022Q3

REPORT INFORMATION
  Report Type: Spontaneous
  Country: KR (occurrence: KR)
  Receive Date: 20220926
  Receipt Date: 20220926
  Transmission Date: 20221026
  Serious: Yes (Other)
  Sender: FDA-Public Use
  Company Number: KR-009507513-2209KOR009090

PATIENT
  Sex: Female
  Weight: 40.6 kg

DRUGS (23)
  1. KEYTRUDA [Suspect]
     Active Substance: PEMBROLIZUMAB
     Indication: Endometrial cancer
     Dosage: 200 MILLIGRAM, UNK
     Route: 042
     Dates: start: 20211006, end: 20211006
  2. KEYTRUDA [Suspect]
     Active Substance: PEMBROLIZUMAB
     Dosage: 200 MILLIGRAM, UNK
     Route: 042
     Dates: start: 20211027, end: 20211027
  3. KEYTRUDA [Suspect]
     Active Substance: PEMBROLIZUMAB
     Dosage: 200 MILLIGRAM, UNK
     Route: 042
     Dates: start: 20211117, end: 20211117
  4. KEYTRUDA [Suspect]
     Active Substance: PEMBROLIZUMAB
     Dosage: 200 MILLIGRAM, UNK
     Route: 042
     Dates: start: 20211208, end: 20211208
  5. KEYTRUDA [Suspect]
     Active Substance: PEMBROLIZUMAB
     Dosage: 200 MILLIGRAM, UNK
     Route: 042
     Dates: start: 20211229, end: 20211229
  6. KEYTRUDA [Suspect]
     Active Substance: PEMBROLIZUMAB
     Dosage: 200 MILLIGRAM, UNK
     Route: 042
     Dates: start: 20220119, end: 20220119
  7. KEYTRUDA [Suspect]
     Active Substance: PEMBROLIZUMAB
     Dosage: 200 MILLIGRAM, UNK
     Route: 042
     Dates: start: 20220209, end: 20220209
  8. KEYTRUDA [Suspect]
     Active Substance: PEMBROLIZUMAB
     Dosage: 200 MILLIGRAM, UNK
     Route: 042
     Dates: start: 20220302, end: 20220302
  9. KEYTRUDA [Suspect]
     Active Substance: PEMBROLIZUMAB
     Dosage: 200 MILLIGRAM, UNK
     Route: 042
     Dates: start: 20220323, end: 20220323
  10. KEYTRUDA [Suspect]
     Active Substance: PEMBROLIZUMAB
     Dosage: 200 MILLIGRAM, UNK
     Route: 042
     Dates: start: 20220413, end: 20220413
  11. KEYTRUDA [Suspect]
     Active Substance: PEMBROLIZUMAB
     Dosage: 200 MILLIGRAM, UNK
     Route: 042
     Dates: start: 20220504, end: 20220504
  12. KEYTRUDA [Suspect]
     Active Substance: PEMBROLIZUMAB
     Dosage: 200 MILLIGRAM, UNK
     Route: 042
     Dates: start: 20220527, end: 20220527
  13. KEYTRUDA [Suspect]
     Active Substance: PEMBROLIZUMAB
     Dosage: 200 MILLIGRAM, UNK
     Route: 042
     Dates: start: 20220617, end: 20220617
  14. KEYTRUDA [Suspect]
     Active Substance: PEMBROLIZUMAB
     Dosage: 200 MILLIGRAM, UNK
     Route: 042
     Dates: start: 20220708, end: 20220708
  15. KEYTRUDA [Suspect]
     Active Substance: PEMBROLIZUMAB
     Dosage: 200 MILLIGRAM, UNK
     Route: 042
     Dates: start: 20220729, end: 20220729
  16. KEYTRUDA [Suspect]
     Active Substance: PEMBROLIZUMAB
     Dosage: 200 MILLIGRAM, UNK
     Route: 042
     Dates: start: 20220819, end: 20220819
  17. KEYTRUDA [Suspect]
     Active Substance: PEMBROLIZUMAB
     Dosage: 200 MILLIGRAM, UNK
     Route: 042
     Dates: start: 20220913, end: 20220913
  18. LENVATINIB MESYLATE [Suspect]
     Active Substance: LENVATINIB MESYLATE
     Indication: Endometrial cancer
     Dosage: 20 MILLIGRAM, UNK
     Route: 048
     Dates: start: 20211006
  19. METFORMIN HYDROCHLORIDE [Concomitant]
     Active Substance: METFORMIN HYDROCHLORIDE
     Indication: Diabetes mellitus
     Dosage: TOTAL DAILY DOSE: 2 TAB
     Route: 048
     Dates: start: 20210521, end: 20211123
  20. TENELIGLIPTIN [Concomitant]
     Active Substance: TENELIGLIPTIN
     Indication: Diabetes mellitus
     Dosage: TOTAL DAILY DOSE: 1 TAB
     Route: 048
     Dates: start: 20210521
  21. ABSTRAL [Concomitant]
     Active Substance: FENTANYL CITRATE
     Indication: Pain
     Dosage: TOTAL DAILY DOSE: 4 DOSAGE FORM
     Route: 060
     Dates: start: 20210903, end: 20211116
  22. TAMSIN SR [Concomitant]
     Indication: Urinary tract infection
     Dosage: TOTAL DAILY DOSE: 1 TABLET
     Route: 048
     Dates: start: 20210913, end: 20211117
  23. DIABEX [Concomitant]
     Active Substance: METFORMIN HYDROCHLORIDE
     Indication: Diabetes mellitus
     Dosage: TOTAL DAILY DOSE: 2 TAB
     Route: 048
     Dates: start: 20211124

REACTIONS (15)
  - Hyperkalaemia [Recovered/Resolved]
  - Periodontitis [Recovered/Resolved]
  - Proteinuria [Recovered/Resolved]
  - Proteinuria [Recovered/Resolved]
  - Folliculitis [Unknown]
  - Candida infection [Unknown]
  - Hyperkeratosis [Recovering/Resolving]
  - Blood thyroid stimulating hormone increased [Unknown]
  - Aspartate aminotransferase increased [Unknown]
  - Urticaria [Unknown]
  - Constipation [Recovered/Resolved]
  - Arthritis [Recovered/Resolved]
  - Arthralgia [Recovering/Resolving]
  - Product use issue [Unknown]
  - Product use issue [Unknown]

NARRATIVE: CASE EVENT DATE: 20220101
